FAERS Safety Report 15099176 (Version 1)
Quarter: 2018Q2

REPORT INFORMATION
  Report Type: Spontaneous
  Country: US (occurrence: US)
  Receive Date: 20180611
  Receipt Date: 20180611
  Transmission Date: 20180711
  Serious: Yes (Disabling)
  Sender: FDA-Public Use
  Company Number: None

PATIENT
  Age: 57 Year
  Sex: Female
  Weight: 58.5 kg

DRUGS (1)
  1. TRETINOIN CREAM, USP (0.025%) [Suspect]
     Active Substance: TRETINOIN
     Indication: SKIN COSMETIC PROCEDURE
     Dosage: ?          QUANTITY:1 OUNCE(S);?
     Route: 061
     Dates: start: 20180103, end: 20180413

REACTIONS (1)
  - Alopecia [None]

NARRATIVE: CASE EVENT DATE: 20180313
